FAERS Safety Report 9836799 (Version 2)
Quarter: 2014Q1

REPORT INFORMATION
  Report Type: Spontaneous
  Country: US (occurrence: US)
  Receive Date: 20140123
  Receipt Date: 20140123
  Transmission Date: 20141002
  Serious: No
  Sender: FDA-Public Use
  Company Number: US-PFIZER INC-2014011828

PATIENT
  Sex: Female

DRUGS (1)
  1. LIPITOR [Suspect]
     Indication: CAROTID ARTERIOSCLEROSIS
     Dosage: 40 MG, ALTERNATE DAY

REACTIONS (2)
  - Off label use [Unknown]
  - Myalgia [Unknown]
